FAERS Safety Report 16947313 (Version 1)
Quarter: 2019Q4

REPORT INFORMATION
  Report Type: Spontaneous
  Country: BR (occurrence: BR)
  Receive Date: 20191022
  Receipt Date: 20191022
  Transmission Date: 20200122
  Serious: Yes (Hospitalization, Other)
  Sender: FDA-Public Use
  Company Number: BR-SA-2019SA280671

PATIENT
  Sex: Female
  Weight: 80 kg

DRUGS (8)
  1. XARELTO [Concomitant]
     Active Substance: RIVAROXABAN
     Indication: THROMBOSIS
     Dosage: D
     Route: 048
     Dates: start: 2013
  2. ALENIA [BUDESONIDE;FORMOTEROL FUMARATE] [Concomitant]
     Active Substance: BUDESONIDE\FORMOTEROL FUMARATE
     Indication: LUNG DISORDER
     Dosage: UNK UNK, BID
     Route: 065
     Dates: start: 201906
  3. SIMVASTATIN. [Concomitant]
     Active Substance: SIMVASTATIN
     Indication: BLOOD CHOLESTEROL ABNORMAL
     Dosage: 1 DF, QD
     Route: 048
     Dates: start: 2009
  4. AMLODIPINE [Concomitant]
     Active Substance: AMLODIPINE BESYLATE
     Indication: CARDIAC DISORDER
     Dosage: UNK UNK, QD
     Route: 048
     Dates: start: 1999
  5. CONCOR [Concomitant]
     Active Substance: BISOPROLOL FUMARATE
     Indication: CARDIAC DISORDER
     Dosage: UNK, QD
     Route: 048
     Dates: start: 201903
  6. LANTUS [Suspect]
     Active Substance: INSULIN GLARGINE
     Indication: DIABETES MELLITUS
     Dosage: UNK, BID
     Route: 058
     Dates: start: 201907
  7. ALPRAZOLAM. [Concomitant]
     Active Substance: ALPRAZOLAM
     Indication: SLEEP DISORDER
     Dosage: UNK UNK, QD
     Route: 048
     Dates: start: 201904
  8. MODURETIC 5-50 [Concomitant]
     Active Substance: AMILORIDE HYDROCHLORIDE\HYDROCHLOROTHIAZIDE
     Indication: DIURETIC THERAPY
     Dosage: 1 DF, QD
     Route: 048
     Dates: start: 2018

REACTIONS (12)
  - Pulmonary oedema [Unknown]
  - Cough [Unknown]
  - Blood glucose increased [Unknown]
  - Urinary tract infection [Unknown]
  - Lung disorder [Unknown]
  - Adverse event [Unknown]
  - Inappropriate schedule of product administration [Unknown]
  - Blood glucose fluctuation [Unknown]
  - Condition aggravated [Unknown]
  - Hypertension [Unknown]
  - Hypotension [Unknown]
  - Urogenital infection bacterial [Unknown]
